FAERS Safety Report 5801472-8 (Version None)
Quarter: 2008Q3

REPORT INFORMATION
  Report Type: 
  Country: None (occurrence: None)
  Receive Date: 20080707
  Receipt Date: 20080630
  Transmission Date: 20090109
  Serious: Yes (Hospitalization)
  Sender: FDA-Public Use
  Company Number: GB-TEVA-173664ISR

PATIENT
  Age: 94 Year
  Sex: Female

DRUGS (1)
  1. MIRTAZAPINE [Suspect]
     Dates: end: 20080618

REACTIONS (1)
  - GASTROINTESTINAL HAEMORRHAGE [None]
